FAERS Safety Report 5017357-3 (Version None)
Quarter: 2006Q2

REPORT INFORMATION
  Report Type: 
  Country: None (occurrence: None)
  Receive Date: 20060414
  Receipt Date: 20060301
  Transmission Date: 20061013
  Serious: No
  Sender: FDA-Public Use
  Company Number: 2006SP001014

PATIENT
  Age: 65 Year
  Sex: Male
  Weight: 117.9352 kg

DRUGS (4)
  1. LUNESTA [Suspect]
     Indication: INSOMNIA
     Dosage: 2 MG; HS; ORAL
     Route: 048
     Dates: start: 20060227, end: 20060228
  2. REQUIP [Concomitant]
  3. INSULIN [Concomitant]
  4. LASIX [Concomitant]

REACTIONS (1)
  - RESTLESS LEGS SYNDROME [None]
